FAERS Safety Report 8315391-9 (Version None)
Quarter: 2012Q2

REPORT INFORMATION
  Report Type: 
  Country: None (occurrence: None)
  Receive Date: 20120426
  Receipt Date: 20120420
  Transmission Date: 20120825
  Serious: Yes (Hospitalization)
  Sender: FDA-Public Use
  Company Number: US-B.I. PHARMACEUTICALS,INC./RIDGEFIELD-2012-BP-09231BP

PATIENT
  Sex: Male

DRUGS (7)
  1. ADVAIR DISKUS 100/50 [Concomitant]
     Indication: ASTHMA
     Dosage: 2 PUF
     Route: 055
  2. AMIODARONE HCL [Concomitant]
     Dosage: 400 MG
     Route: 048
  3. LISINOPRIL [Concomitant]
     Dosage: 2.5 MG
     Route: 048
  4. POT CL MICRO [Concomitant]
     Dosage: 20 MEQ
     Route: 048
  5. PRADAXA [Suspect]
     Indication: ATRIAL FIBRILLATION
     Dosage: 300 MG
     Route: 048
     Dates: start: 20120201
  6. METOPROLOL TARTRATE [Concomitant]
     Dosage: 50 MG
     Route: 048
  7. PRAVASTATIN [Concomitant]
     Indication: BLOOD CHOLESTEROL INCREASED
     Dosage: 20 MG
     Route: 048

REACTIONS (5)
  - DEVICE BREAKAGE [None]
  - OSTEOMYELITIS [None]
  - WEIGHT DECREASED [None]
  - MEDIASTINITIS [None]
  - STAPHYLOCOCCAL SEPSIS [None]
